FAERS Safety Report 5689440-0 (Version None)
Quarter: 2008Q1

REPORT INFORMATION
  Report Type: 
  Country: None (occurrence: None)
  Receive Date: 20080331
  Receipt Date: 20080319
  Transmission Date: 20080703
  Serious: Yes (Other)
  Sender: FDA-Public Use
  Company Number: US-PFIZER INC-2008013194

PATIENT
  Sex: Female
  Weight: 102.1 kg

DRUGS (10)
  1. CHANTIX [Suspect]
     Indication: EX-SMOKER
     Dosage: DAILY DOSE:.5MG
     Dates: start: 20080101, end: 20080101
  2. GEODON [Interacting]
     Indication: PSYCHOTIC DISORDER
  3. GEODON [Interacting]
     Indication: DEPRESSION
  4. GEODON [Interacting]
     Indication: PARANOIA
  5. GEODON [Interacting]
     Indication: SUICIDAL IDEATION
  6. GEODON [Interacting]
     Indication: HALLUCINATION, AUDITORY
  7. GEODON [Interacting]
     Indication: HALLUCINATION, VISUAL
  8. GEODON [Interacting]
     Indication: MENTAL DISORDER
  9. ZYPREXA [Concomitant]
  10. TRAZODONE HCL [Concomitant]

REACTIONS (6)
  - DEPRESSION [None]
  - DRUG INTERACTION [None]
  - HALLUCINATION, AUDITORY [None]
  - HALLUCINATION, VISUAL [None]
  - PARANOIA [None]
  - SUICIDAL IDEATION [None]
